FAERS Safety Report 17172559 (Version 1)
Quarter: 2019Q4

REPORT INFORMATION
  Report Type: Spontaneous
  Country: US (occurrence: US)
  Receive Date: 20191218
  Receipt Date: 20191218
  Transmission Date: 20200122
  Serious: Yes (Other)
  Sender: FDA-Public Use
  Company Number: None

PATIENT
  Age: 61 Year
  Sex: Male
  Weight: 92.99 kg

DRUGS (8)
  1. OZURDEX [Suspect]
     Active Substance: DEXAMETHASONE
  2. GENERIC COREG [Concomitant]
  3. DIVALPROEX [Concomitant]
     Active Substance: DIVALPROEX SODIUM
  4. RAMIPRIL. [Concomitant]
     Active Substance: RAMIPRIL
  5. HUMALOG [Concomitant]
     Active Substance: INSULIN LISPRO
  6. TRESIBA [Concomitant]
     Active Substance: INSULIN DEGLUDEC
  7. ATORVASTATIN [Concomitant]
     Active Substance: ATORVASTATIN
  8. AREDS2 [Concomitant]

REACTIONS (1)
  - Metamorphopsia [None]

NARRATIVE: CASE EVENT DATE: 20191207
